FAERS Safety Report 11869753 (Version 2)
Quarter: 2016Q1

REPORT INFORMATION
  Report Type: Spontaneous
  Country: IT (occurrence: IT)
  Receive Date: 20151228
  Receipt Date: 20160108
  Transmission Date: 20160526
  Serious: Yes (Other)
  Sender: FDA-Public Use
  Company Number: IT-BEH-2015057298

PATIENT
  Age: 56 Year
  Sex: Female

DRUGS (2)
  1. PREDNISOLONE. [Suspect]
     Active Substance: PREDNISOLONE
     Indication: TOXIC EPIDERMAL NECROLYSIS
  2. INTRAVENOUS IMMUNOGLOBULIN [Suspect]
     Active Substance: HUMAN IMMUNOGLOBULIN G
     Indication: TOXIC EPIDERMAL NECROLYSIS
     Route: 042

REACTIONS (2)
  - Toxic epidermal necrolysis [Unknown]
  - Drug ineffective for unapproved indication [Unknown]
